FAERS Safety Report 8037788-7 (Version None)
Quarter: 2012Q1

REPORT INFORMATION
  Report Type: 
  Country: None (occurrence: None)
  Receive Date: 20120111
  Receipt Date: 20120106
  Transmission Date: 20120608
  Serious: Yes (Life-Threatening, Other)
  Sender: FDA-Public Use
  Company Number: US-ASTRAZENECA-2011SE70638

PATIENT
  Age: 33 Year
  Sex: Male
  Weight: 81.6 kg

DRUGS (6)
  1. SEROQUEL [Suspect]
     Route: 048
     Dates: start: 20110901
  2. SEROQUEL [Suspect]
     Route: 048
     Dates: start: 20110901
  3. PAIN MEDICINE [Concomitant]
  4. SEROQUEL [Suspect]
     Indication: DEPRESSION
     Route: 048
  5. REMERON [Concomitant]
  6. SEROQUEL [Suspect]
     Indication: MAJOR DEPRESSION
     Route: 048

REACTIONS (17)
  - SUICIDAL BEHAVIOUR [None]
  - BEDRIDDEN [None]
  - DEPRESSION [None]
  - FEELINGS OF WORTHLESSNESS [None]
  - POOR PERSONAL HYGIENE [None]
  - WEIGHT DECREASED [None]
  - INSOMNIA [None]
  - MALAISE [None]
  - DRUG DOSE OMISSION [None]
  - SUICIDE ATTEMPT [None]
  - ANHEDONIA [None]
  - CONDITION AGGRAVATED [None]
  - ANGER [None]
  - DRUG INEFFECTIVE [None]
  - ABNORMAL BEHAVIOUR [None]
  - IRRITABILITY [None]
  - ASTHENIA [None]
